FAERS Safety Report 13016151 (Version 3)
Quarter: 2017Q1

REPORT INFORMATION
  Report Type: Spontaneous
  Country: US (occurrence: US)
  Receive Date: 20161212
  Receipt Date: 20170303
  Transmission Date: 20170428
  Serious: Yes (Hospitalization)
  Sender: FDA-Public Use
  Company Number: US-JNJFOC-20161120838

PATIENT
  Sex: Male

DRUGS (2)
  1. XARELTO [Suspect]
     Active Substance: RIVAROXABAN
     Indication: ANTICOAGULANT THERAPY
     Dosage: 15MG INCREASED TO 20MG
     Route: 048
     Dates: start: 20141226
  2. XARELTO [Suspect]
     Active Substance: RIVAROXABAN
     Indication: DEEP VEIN THROMBOSIS
     Dosage: 15MG INCREASED TO 20MG
     Route: 048
     Dates: start: 20141226

REACTIONS (2)
  - Gastrointestinal haemorrhage [Unknown]
  - Haemorrhagic stroke [Unknown]
